FAERS Safety Report 19053772 (Version 1)
Quarter: 2021Q1

REPORT INFORMATION
  Report Type: Report from Study
  Country: None (occurrence: US)
  Receive Date: 20210325
  Receipt Date: 20210325
  Transmission Date: 20210420
  Serious: Yes (Other)
  Sender: FDA-Public Use
  Company Number: US-ABBVIE-20K-163-3701197-00

PATIENT
  Sex: Female

DRUGS (1)
  1. HUMIRA [Suspect]
     Active Substance: ADALIMUMAB
     Indication: RHEUMATOID ARTHRITIS
     Route: 058
     Dates: start: 20201211

REACTIONS (15)
  - Loss of personal independence in daily activities [Recovered/Resolved]
  - Injection site bruising [Unknown]
  - Drug ineffective [Unknown]
  - Pollakiuria [Unknown]
  - Cough [Not Recovered/Not Resolved]
  - Depression [Not Recovered/Not Resolved]
  - Arthritis [Unknown]
  - Rheumatoid arthritis [Unknown]
  - Dyspnoea exertional [Unknown]
  - Pain [Unknown]
  - Systemic lupus erythematosus [Unknown]
  - Pruritus [Unknown]
  - Carpal tunnel syndrome [Not Recovered/Not Resolved]
  - Migraine [Unknown]
  - Feeling hot [Unknown]

NARRATIVE: CASE EVENT DATE: 2020
